FAERS Safety Report 8627129 (Version 2)
Quarter: 2012Q4

REPORT INFORMATION
  Report Type: 
  Country: US (occurrence: US)
  Receive Date: 20120621
  Receipt Date: 20120924
  Transmission Date: 20130627
  Serious: No
  Sender: FDA-Public Use
  Company Number: US-ALLERGAN-1207749US

PATIENT
  Age: 66 Year
  Sex: Female
  Weight: 46.26 kg

DRUGS (4)
  1. LUMIGAN [Suspect]
     Indication: GLAUCOMA
     Dosage: 1 Gtt, qd (eye unspecified)
     Route: 047
     Dates: start: 201004, end: 201010
  2. OS-CAL [Concomitant]
     Indication: OSTEOPOROSIS
  3. ALLEGRA [Concomitant]
     Indication: MULTIPLE ALLERGIES
  4. ALLEGRA [Concomitant]
     Indication: SKIN REACTION

REACTIONS (5)
  - Rash [Recovered/Resolved]
  - Tongue pruritus [Recovered/Resolved]
  - Oral pruritus [Recovered/Resolved]
  - Throat irritation [Recovered/Resolved]
  - Tongue disorder [Recovered/Resolved]
